FAERS Safety Report 5625704-4 (Version None)
Quarter: 2008Q1

REPORT INFORMATION
  Report Type: 
  Country: None (occurrence: None)
  Receive Date: 20080207
  Receipt Date: 20080207
  Transmission Date: 20080703
  Serious: Yes (Hospitalization)
  Sender: FDA-Public Use
  Company Number: None

PATIENT
  Sex: Male
  Weight: 61.6892 kg

DRUGS (8)
  1. TEMOZOLOMIDE [Suspect]
     Indication: ACUTE MYELOID LEUKAEMIA
     Dosage: 350MG QD PO
     Route: 048
     Dates: start: 20080202
  2. DILTIAZEM [Concomitant]
  3. OMEPRAZOLE [Concomitant]
  4. SENNA [Concomitant]
  5. DULCOLAX [Concomitant]
  6. MILK OF MAGNESIA [Concomitant]
  7. ALLOPURINOL [Concomitant]
  8. KYTRIL [Concomitant]

REACTIONS (2)
  - BLOOD COUNT ABNORMAL [None]
  - FEBRILE NEUTROPENIA [None]
